APPROVED DRUG PRODUCT: CELEXA
Active Ingredient: CITALOPRAM HYDROBROMIDE
Strength: EQ 10MG BASE/5ML **Federal Register determination that product was not discontinued or withdrawn for safety or effectiveness reasons**
Dosage Form/Route: SOLUTION;ORAL
Application: N021046 | Product #001
Applicant: FOREST LABORATORIES INC
Approved: Dec 22, 1999 | RLD: Yes | RS: No | Type: DISCN